FAERS Safety Report 7936331-8 (Version None)
Quarter: 2011Q4

REPORT INFORMATION
  Report Type: 
  Country: None (occurrence: None)
  Receive Date: 20111123
  Receipt Date: 20111111
  Transmission Date: 20120403
  Serious: Yes (Other)
  Sender: FDA-Public Use
  Company Number: JP-ASTELLAS-2011JP008256

PATIENT
  Age: 63 Year
  Sex: Female

DRUGS (2)
  1. STEROID [Concomitant]
     Indication: DERMATOMYOSITIS
     Route: 065
  2. PROGRAF [Suspect]
     Indication: DERMATOMYOSITIS
     Route: 065

REACTIONS (2)
  - POSTERIOR REVERSIBLE ENCEPHALOPATHY SYNDROME [None]
  - OFF LABEL USE [None]
